FAERS Safety Report 16532274 (Version 1)
Quarter: 2019Q3

REPORT INFORMATION
  Report Type: Spontaneous
  Country: US (occurrence: US)
  Receive Date: 20190704
  Receipt Date: 20190704
  Transmission Date: 20191004
  Serious: No
  Sender: FDA-Public Use
  Company Number: US-TEVA-2019-US-1068005

PATIENT
  Sex: Male

DRUGS (4)
  1. PROAIR INHALER [Concomitant]
     Active Substance: ALBUTEROL SULFATE
  2. TRAMADOL. [Concomitant]
     Active Substance: TRAMADOL
     Indication: PAIN
  3. LEVALBUTEROL INHALATION SOLUTION [Suspect]
     Active Substance: LEVALBUTEROL
     Dosage: DOSE STRENGTH:  1.25/3
  4. ALBUTEROL SULFATE HFA INHALER [Concomitant]

REACTIONS (3)
  - Neck pain [Unknown]
  - Malaise [Unknown]
  - Eructation [Unknown]
